FAERS Safety Report 12526040 (Version 6)
Quarter: 2017Q3

REPORT INFORMATION
  Report Type: Report from Study
  Country: US (occurrence: US)
  Receive Date: 20160705
  Receipt Date: 20170803
  Transmission Date: 20171127
  Serious: No
  Sender: FDA-Public Use
  Company Number: US-PFIZER INC-2016295636

PATIENT
  Age: 71 Year
  Sex: Female
  Weight: 83.91 kg

DRUGS (3)
  1. IBRANCE [Suspect]
     Active Substance: PALBOCICLIB
     Dosage: 125 MG, CYCLIC (D1-21 Q 28 DAYS)
     Route: 048
     Dates: start: 20170523
  2. IBRANCE [Suspect]
     Active Substance: PALBOCICLIB
     Indication: BREAST CANCER METASTATIC
     Dosage: 125 MG, UNK
     Route: 048
  3. IBRANCE [Suspect]
     Active Substance: PALBOCICLIB
     Dosage: 125 MG, CYCLIC (D1-14 Q 28 DAYS)
     Route: 048
     Dates: start: 20170523

REACTIONS (11)
  - Malaise [Unknown]
  - Oropharyngeal pain [Unknown]
  - Vertigo [Unknown]
  - Full blood count decreased [Unknown]
  - Headache [Unknown]
  - Nausea [Unknown]
  - Skin exfoliation [Unknown]
  - Urticaria [Unknown]
  - Eye swelling [Unknown]
  - Peripheral swelling [Unknown]
  - Hot flush [Unknown]
